FAERS Safety Report 22633769 (Version 1)
Quarter: 2023Q2

REPORT INFORMATION
  Report Type: Spontaneous
  Country: NL (occurrence: NL)
  Receive Date: 20230623
  Receipt Date: 20230623
  Transmission Date: 20230721
  Serious: Yes (Life-Threatening)
  Sender: FDA-Public Use
  Company Number: None

PATIENT
  Sex: Male
  Weight: 88 kg

DRUGS (16)
  1. OXALIPLATIN [Suspect]
     Active Substance: OXALIPLATIN
     Indication: Colon cancer metastatic
     Dosage: 175G
     Dates: start: 20230509, end: 20230509
  2. METOPROLOL [Concomitant]
     Active Substance: METOPROLOL
     Dosage: TABLET MET GEREGULEERDE AFGIFTE, 50 MG (MILLIGRAM)
  3. OXAZEPAM [Concomitant]
     Active Substance: OXAZEPAM
     Dosage: TABLET, 10 MG (MILLIGRAM)
  4. PANTOPRAZOLE SODIUM [Concomitant]
     Active Substance: PANTOPRAZOLE SODIUM
     Dosage: MAAGSAPRESISTENTE TABLET, 40 MG (MILLIGRAM)
  5. FENTANYL [Concomitant]
     Active Substance: FENTANYL
     Dosage: TABLET, 100 MCG (MICROGRAM)
  6. TEMAZEPAM [Concomitant]
     Active Substance: TEMAZEPAM
     Dosage: CAPSULE, 10 MG (MILLIGRAM)
  7. CARBASPIRIN CALCIUM [Concomitant]
     Active Substance: CARBASPIRIN CALCIUM
     Dosage: ZAKJE (POEDER), 100 MG (MILLIGRAM)
  8. NIFEDIPINE [Concomitant]
     Active Substance: NIFEDIPINE
     Dosage: TABLET MET GEREGULEERDE AFGIFTE, 20 MG (MILLIGRAM)
  9. METOCLOPRAMIDE [Concomitant]
     Active Substance: METOCLOPRAMIDE
     Dosage: TABLET, 10 MG (MILLIGRAM)
  10. ISOSORBIDE MONONITRATE [Concomitant]
     Active Substance: ISOSORBIDE MONONITRATE
     Dosage: CAPSULE MET GEREGULEERDE AFGIFTE, 25 MG (MILLIGRAM)
  11. DEXAMETHASONE [Concomitant]
     Active Substance: DEXAMETHASONE
     Dosage: TABLET, 4 MG (MILLIGRAM)
  12. ONDANSETRON [Concomitant]
     Active Substance: ONDANSETRON
     Dosage: SMELTTABLET, 8 MG (MILLIGRAM)
  13. LEUCOVORIN [Concomitant]
     Active Substance: LEUCOVORIN
     Dosage: INJECTIEVLOEISTOF, 10 MG/ML (MILLIGRAM PER MILLILITER)
  14. BEVACIZUMAB [Concomitant]
     Active Substance: BEVACIZUMAB
     Dosage: INFUSION, 1 MG/MG (MILLIGRAM PER MILLIGRAM)
  15. NITROGLYCERIN [Concomitant]
     Active Substance: NITROGLYCERIN
     Dosage: SPRAY, 0,4 MG/DOSIS (MILLIGRAM PER DOSIS)
  16. FLUOROURACIL [Concomitant]
     Active Substance: FLUOROURACIL
     Dosage: INJECTION/INFUSION

REACTIONS (2)
  - Arteriospasm coronary [Recovered/Resolved]
  - Acute myocardial infarction [Recovered/Resolved]
